FAERS Safety Report 6825567-5 (Version None)
Quarter: 2010Q3

REPORT INFORMATION
  Report Type: 
  Country: None (occurrence: None)
  Receive Date: 20100708
  Receipt Date: 20080910
  Transmission Date: 20110219
  Serious: No
  Sender: FDA-Public Use
  Company Number: US-PFIZER INC-2006147695

PATIENT
  Sex: Female
  Weight: 65.77 kg

DRUGS (7)
  1. CHANTIX [Suspect]
     Indication: SMOKING CESSATION THERAPY
     Route: 048
     Dates: start: 20061113, end: 20060101
  2. PROTONIX [Concomitant]
     Indication: DYSPEPSIA
  3. HYDROCHLOROTHIAZIDE [Concomitant]
     Indication: BLOOD PRESSURE ABNORMAL
  4. ACETAMINOPHEN [Concomitant]
     Indication: SLEEP DISORDER
  5. ALBUTEROL [Concomitant]
  6. IPRATROPIUM [Concomitant]
     Route: 055
  7. XANAX [Concomitant]

REACTIONS (3)
  - ABNORMAL DREAMS [None]
  - HEADACHE [None]
  - NAUSEA [None]
